FAERS Safety Report 18612462 (Version 1)
Quarter: 2020Q4

REPORT INFORMATION
  Report Type: Spontaneous
  Country: US (occurrence: US)
  Receive Date: 20201214
  Receipt Date: 20201214
  Transmission Date: 20210114
  Serious: Yes (Other)
  Sender: FDA-Public Use
  Company Number: US-NALPROPION PHARMACEUTICALS INC.-2020-011610

PATIENT
  Age: 67 Year
  Sex: Female
  Weight: 94.33 kg

DRUGS (1)
  1. CONTRAVE [Suspect]
     Active Substance: BUPROPION HYDROCHLORIDE\NALTREXONE HYDROCHLORIDE
     Indication: WEIGHT CONTROL
     Dosage: PATIENT TOOK ONE TABLET
     Route: 048
     Dates: start: 20201031, end: 20201031

REACTIONS (10)
  - Illness [Recovered/Resolved]
  - Loss of consciousness [Unknown]
  - Feeling abnormal [Recovered/Resolved]
  - Euphoric mood [Recovered/Resolved]
  - Vomiting [Recovered/Resolved]
  - Dizziness [Recovered/Resolved]
  - Unevaluable event [Unknown]
  - Mental impairment [Recovered/Resolved]
  - Eating disorder [Recovered/Resolved]
  - Insomnia [Recovered/Resolved]

NARRATIVE: CASE EVENT DATE: 20201031
